FAERS Safety Report 16029550 (Version 1)
Quarter: 2019Q1

REPORT INFORMATION
  Report Type: Spontaneous
  Country: US (occurrence: US)
  Receive Date: 20190304
  Receipt Date: 20190304
  Transmission Date: 20190418
  Serious: No
  Sender: FDA-Public Use
  Company Number: US-IMPAX LABORATORIES, LLC-2018-IPXL-01616

PATIENT
  Sex: Male

DRUGS (3)
  1. RYTARY [Suspect]
     Active Substance: CARBIDOPA\LEVODOPA
     Dosage: 36.25/145 MG ONE CAPSULE TWO TIMES DAILY AND 48.75/195 MG, ONE CAPSULE TWO TIMES DAILY
     Route: 048
     Dates: start: 201804
  2. RYTARY [Suspect]
     Active Substance: CARBIDOPA\LEVODOPA
     Dosage: 36.25/145 MG ONE CAPSULE FOUR TIMES DAILY AND 48.75/195 MG, ONE CAPSULE FOUR TIMES DAILY
     Route: 048
     Dates: start: 2017
  3. RYTARY [Suspect]
     Active Substance: CARBIDOPA\LEVODOPA
     Indication: PARKINSON^S DISEASE
     Dosage: UNK
     Route: 048
     Dates: start: 2016

REACTIONS (5)
  - Treatment noncompliance [Unknown]
  - Compulsions [Recovered/Resolved]
  - Mood altered [Recovered/Resolved]
  - Gambling disorder [Recovered/Resolved]
  - Aggression [Recovered/Resolved]

NARRATIVE: CASE EVENT DATE: 2016
